FAERS Safety Report 15644013 (Version 2)
Quarter: 2018Q4

REPORT INFORMATION
  Report Type: Report from Study
  Country: RO (occurrence: RO)
  Receive Date: 20181121
  Receipt Date: 20181203
  Transmission Date: 20190205
  Serious: Yes (Hospitalization, Disabling, Other)
  Sender: FDA-Public Use
  Company Number: RO-OTSUKA-2018_036347

PATIENT
  Age: 49 Year
  Sex: Female
  Weight: 52 kg

DRUGS (8)
  1. ALPHA D3 [Concomitant]
     Active Substance: ALFACALCIDOL
     Indication: VITAMIN D DEFICIENCY
     Dosage: 0.5 ?G, QD
     Route: 048
     Dates: start: 20170109
  2. ASPENTER [Concomitant]
     Active Substance: ASPIRIN
     Indication: THROMBOSIS PROPHYLAXIS
     Dosage: 75 MG, QD
     Route: 048
     Dates: start: 20160525
  3. CONCOR [Concomitant]
     Active Substance: BISOPROLOL FUMARATE
     Indication: MITRAL VALVE INCOMPETENCE
     Dosage: 1.25 MG, QD
     Route: 048
     Dates: start: 20160525
  4. TENAXUM [Concomitant]
     Active Substance: RILMENIDINE
     Indication: HYPERTENSION
     Dosage: 1 MG, QD
     Route: 048
     Dates: start: 20160525
  5. DICARBOCALM [Concomitant]
     Indication: HYPERPHOSPHATAEMIA
     Dosage: 1 DF, TID
     Route: 048
     Dates: start: 20160525
  6. TOLVAPTAN [Suspect]
     Active Substance: TOLVAPTAN
     Indication: CONGENITAL CYSTIC KIDNEY DISEASE
     Dosage: 120 MG, QD
     Route: 048
     Dates: start: 20150917
  7. OMEGA 3 [Concomitant]
     Active Substance: OMEGA-3 FATTY ACIDS
     Indication: HYPERCHOLESTEROLAEMIA
     Dosage: 1300 MG, QD
     Route: 048
     Dates: start: 20160525
  8. IRBESARTAN. [Concomitant]
     Active Substance: IRBESARTAN
     Indication: HYPERTENSION
     Dosage: 300 MG, QD
     Route: 048
     Dates: start: 20160525

REACTIONS (2)
  - Radius fracture [Recovered/Resolved with Sequelae]
  - Humerus fracture [Recovered/Resolved with Sequelae]

NARRATIVE: CASE EVENT DATE: 20180725
